FAERS Safety Report 11689740 (Version 4)
Quarter: 2016Q3

REPORT INFORMATION
  Report Type: Spontaneous
  Country: JP (occurrence: JP)
  Receive Date: 20151102
  Receipt Date: 20160830
  Transmission Date: 20161109
  Serious: Yes (Hospitalization, Other)
  Sender: FDA-Public Use
  Company Number: JP-GLAXOSMITHKLINE-JP2015JPN152159

PATIENT
  Age: 43 Year
  Sex: Female

DRUGS (1)
  1. LAMICTAL [Suspect]
     Active Substance: LAMOTRIGINE
     Indication: BIPOLAR DISORDER
     Dosage: UNK
     Route: 048

REACTIONS (14)
  - Generalised erythema [Unknown]
  - White blood cell count increased [Unknown]
  - Drug reaction with eosinophilia and systemic symptoms [Unknown]
  - Drug eruption [Unknown]
  - Swelling face [Unknown]
  - Lymphadenopathy [Unknown]
  - Cough [Unknown]
  - Aphthous ulcer [Unknown]
  - Pyrexia [Unknown]
  - Rash [Unknown]
  - Oropharyngeal pain [Unknown]
  - Neutrophil count increased [Unknown]
  - Hepatic function abnormal [Unknown]
  - Enanthema [Unknown]
